FAERS Safety Report 9998334 (Version 2)
Quarter: 2014Q1

REPORT INFORMATION
  Report Type: Spontaneous
  Country: PL (occurrence: PL)
  Receive Date: 20140312
  Receipt Date: 20140312
  Transmission Date: 20141002
  Serious: Yes (Other)
  Sender: FDA-Public Use
  Company Number: PHHY2013PL106160

PATIENT
  Age: 26 Year
  Sex: Female

DRUGS (11)
  1. METOPROLOL [Suspect]
     Indication: VENTRICULAR TACHYCARDIA
  2. METOPROLOL [Suspect]
     Indication: SINUS TACHYCARDIA
  3. METOPROLOL [Suspect]
     Indication: VENTRICULAR EXTRASYSTOLES
  4. SOTALOL [Suspect]
     Indication: VENTRICULAR TACHYCARDIA
  5. SOTALOL [Suspect]
     Indication: VENTRICULAR EXTRASYSTOLES
  6. DIAZEPAM [Suspect]
     Indication: SEDATION
     Dosage: 5 MG, UNK
  7. AMIODARONE [Suspect]
     Indication: VENTRICULAR TACHYCARDIA
     Route: 042
  8. ISOPROTERENOL HCL INJ USP [Suspect]
     Indication: VENTRICULAR TACHYCARDIA
     Route: 041
  9. BENZODIAZEPINES [Suspect]
     Indication: POST-TRAUMATIC STRESS DISORDER
  10. MIDANIUM [Suspect]
     Indication: SEDATION
     Dosage: 1 MG, UNK
     Route: 042
  11. ANTIDEPRESSANTS [Suspect]

REACTIONS (8)
  - Ventricular arrhythmia [Unknown]
  - Ventricular tachycardia [Recovered/Resolved]
  - Ventricular extrasystoles [Recovered/Resolved]
  - Post-traumatic stress disorder [Unknown]
  - Maternal exposure during pregnancy [Unknown]
  - Normal newborn [Unknown]
  - Premature labour [Unknown]
  - Drug ineffective [Unknown]
